FAERS Safety Report 5506866-6 (Version None)
Quarter: 2007Q4

REPORT INFORMATION
  Report Type: 
  Country: None (occurrence: None)
  Receive Date: 20071105
  Receipt Date: 20071025
  Transmission Date: 20080405
  Serious: Yes (Death, Hospitalization)
  Sender: FDA-Public Use
  Company Number: US-SHR-US-2007-036888

PATIENT
  Age: 71 Year
  Sex: Male
  Weight: 79.6 kg

DRUGS (2)
  1. LEUKINE [Suspect]
     Indication: PROSTATE CANCER
     Dosage: 500 A?G, DAYS 1-14
     Route: 058
     Dates: start: 20061127, end: 20070918
  2. TAXOTERE [Suspect]
     Indication: PROSTATE CANCER

REACTIONS (3)
  - ADRENOCORTICAL INSUFFICIENCY ACUTE [None]
  - DEHYDRATION [None]
  - PULMONARY OEDEMA [None]
